FAERS Safety Report 7297540-7 (Version None)
Quarter: 2011Q1

REPORT INFORMATION
  Report Type: 
  Country: None (occurrence: None)
  Receive Date: 20110216
  Receipt Date: 20110211
  Transmission Date: 20110831
  Serious: Yes (Other)
  Sender: FDA-Public Use
  Company Number: US-PFIZER INC-2011004316

PATIENT
  Sex: Female
  Weight: 66 kg

DRUGS (5)
  1. XALATAN [Suspect]
     Indication: GLAUCOMA SURGERY
  2. HYZAAR [Concomitant]
     Dosage: UNK
     Dates: start: 20090101
  3. XALATAN [Suspect]
     Indication: OPEN ANGLE GLAUCOMA
     Dosage: 0.005 %, 1X/DAY
     Route: 047
     Dates: start: 20030101, end: 20101217
  4. CRESTOR [Concomitant]
     Indication: BLOOD CHOLESTEROL INCREASED
     Dosage: UNK
     Dates: start: 20090101
  5. TOPROL-XL [Concomitant]
     Dosage: UNK
     Dates: start: 20090101

REACTIONS (3)
  - PULMONARY THROMBOSIS [None]
  - DEEP VEIN THROMBOSIS [None]
  - PULMONARY EMBOLISM [None]
